FAERS Safety Report 13089081 (Version 1)
Quarter: 2017Q1

REPORT INFORMATION
  Report Type: Spontaneous
  Country: US (occurrence: US)
  Receive Date: 20170105
  Receipt Date: 20170105
  Transmission Date: 20170428
  Serious: No
  Sender: FDA-Public Use
  Company Number: US-PERRIGO-16US019292

PATIENT
  Sex: Female
  Weight: 49.43 kg

DRUGS (2)
  1. OSPHENA [Concomitant]
     Active Substance: OSPEMIFENE
     Indication: MENOPAUSE
     Dosage: UNK
     Route: 065
     Dates: start: 2015
  2. GUAIFENESIN. [Suspect]
     Active Substance: GUAIFENESIN
     Indication: FIBROMYALGIA
     Dosage: 600 MG, BID
     Route: 048
     Dates: start: 2013, end: 201607

REACTIONS (3)
  - Incorrect drug administration duration [Recovered/Resolved]
  - Therapeutic response unexpected [Recovered/Resolved]
  - Off label use [Recovered/Resolved]

NARRATIVE: CASE EVENT DATE: 2013
